FAERS Safety Report 24417633 (Version 1)
Quarter: 2024Q4

REPORT INFORMATION
  Report Type: Report from Study
  Country: ES (occurrence: ES)
  Receive Date: 20241009
  Receipt Date: 20241009
  Transmission Date: 20250115
  Serious: Yes (Hospitalization)
  Sender: TEVA
  Company Number: None

PATIENT
  Age: 78 Year
  Sex: Female

DRUGS (6)
  1. CIPROFLOXACIN [Suspect]
     Active Substance: CIPROFLOXACIN
     Indication: Endophthalmitis
     Dosage: CIPROFLOXACIN (2049A)
     Route: 048
     Dates: start: 20240621, end: 20240701
  2. ACETAMINOPHEN [Concomitant]
     Active Substance: ACETAMINOPHEN
     Indication: Endophthalmitis
     Dosage: PARACETAMOL (12A)
     Route: 048
     Dates: start: 20240621, end: 20240701
  3. CEFTAZIDIME [Concomitant]
     Active Substance: CEFTAZIDIME
     Indication: Endophthalmitis
     Dosage: CEFTAZIDIMA (189A)
     Route: 065
     Dates: start: 20240621, end: 20240701
  4. VANCOMYCIN [Concomitant]
     Active Substance: VANCOMYCIN
     Indication: Endophthalmitis
     Dosage: VANCOMYCIN (3197A)
     Route: 065
     Dates: start: 20240621, end: 20240701
  5. OMEPRAZOLE [Concomitant]
     Active Substance: OMEPRAZOLE
     Indication: Endophthalmitis
     Dosage: OMEPRAZOL (2141A)
     Route: 048
     Dates: start: 20240621, end: 20240701
  6. IBUPROFEN [Concomitant]
     Active Substance: IBUPROFEN
     Indication: Endophthalmitis
     Dosage: IBUPROFENE (1769A)
     Route: 048
     Dates: start: 20240621, end: 20240701

REACTIONS (2)
  - Tubulointerstitial nephritis [Recovered/Resolved]
  - Wrong dose [Recovered/Resolved]

NARRATIVE: CASE EVENT DATE: 20240621
